FAERS Safety Report 21770653 (Version 1)
Quarter: 2022Q4

REPORT INFORMATION
  Report Type: Spontaneous
  Country: EC (occurrence: EC)
  Receive Date: 20221223
  Receipt Date: 20221223
  Transmission Date: 20230112
  Serious: Yes (Hospitalization, Other)
  Sender: FDA-Public Use
  Company Number: EC-SA-SAC20221221000353

PATIENT
  Age: 59 Year
  Sex: Female

DRUGS (10)
  1. CLOPIDOGREL BISULFATE [Suspect]
     Active Substance: CLOPIDOGREL BISULFATE
  2. LEVOTHYROXINE [Concomitant]
     Active Substance: LEVOTHYROXINE
     Indication: Hypothyroidism
  3. LOSARTAN [Concomitant]
     Active Substance: LOSARTAN
     Indication: Hypertension
  4. CHLORTHALIDONE [Concomitant]
     Active Substance: CHLORTHALIDONE
     Indication: Hypertension
  5. ZOPICLONE [Concomitant]
     Active Substance: ZOPICLONE
     Indication: Insomnia
     Dosage: 7.5 MG
  6. SIMVASTATIN [Concomitant]
     Active Substance: SIMVASTATIN
     Indication: Dyslipidaemia
     Dosage: 40MG QD
  7. HYDROCORTISONE [Concomitant]
     Active Substance: HYDROCORTISONE
     Indication: Urticaria
  8. AMOXICILLIN\CLAVULANIC ACID [Concomitant]
     Active Substance: AMOXICILLIN\CLAVULANIC ACID
     Indication: Respiratory tract infection
  9. METHYLPREDNISOLONE [Concomitant]
     Active Substance: METHYLPREDNISOLONE
     Dosage: 1G QD
  10. LORATADINE [Concomitant]
     Active Substance: LORATADINE
     Dosage: 10MG Q12H
     Route: 048

REACTIONS (17)
  - Hypoxia [Recovered/Resolved]
  - Malaise [Recovered/Resolved]
  - Tachypnoea [Recovered/Resolved]
  - Mouth ulceration [Recovered/Resolved]
  - Hypokalaemia [Recovered/Resolved]
  - Condition aggravated [Recovered/Resolved]
  - C-reactive protein increased [Recovered/Resolved]
  - Transaminases increased [Recovered/Resolved]
  - Skin discolouration [Recovered/Resolved]
  - Condition aggravated [Recovered/Resolved]
  - Pruritus [Recovered/Resolved]
  - Rash maculo-papular [Recovered/Resolved]
  - Blood creatinine increased [Recovered/Resolved]
  - Acute kidney injury [Recovered/Resolved]
  - Stevens-Johnson syndrome [Recovered/Resolved]
  - Abdominal discomfort [Recovered/Resolved]
  - Pyrexia [Recovered/Resolved]
